FAERS Safety Report 21662919 (Version 1)
Quarter: 2022Q4

REPORT INFORMATION
  Report Type: Spontaneous
  Country: US (occurrence: None)
  Receive Date: 20221129
  Receipt Date: 20221129
  Transmission Date: 20230113
  Serious: Yes (Other)
  Sender: FDA-Public Use
  Company Number: None

PATIENT
  Sex: Male

DRUGS (3)
  1. TACROLIMUS [Suspect]
     Active Substance: TACROLIMUS
     Indication: Heart transplant
     Dosage: FREQUENCY : AT BEDTIME;?
     Route: 048
     Dates: start: 20200505
  2. TACROLIMUS [Suspect]
     Active Substance: TACROLIMUS
     Dosage: FREQUENCY : AT BEDTIME;?
     Route: 048
  3. SIROLIMUS [Concomitant]
     Active Substance: SIROLIMUS

REACTIONS (1)
  - Road traffic accident [None]
